FAERS Safety Report 20008905 (Version 2)
Quarter: 2021Q4

REPORT INFORMATION
  Report Type: Spontaneous
  Country: US (occurrence: US)
  Receive Date: 20211028
  Receipt Date: 20211103
  Transmission Date: 20220303
  Serious: Yes (Hospitalization)
  Sender: FDA-Public Use
  Company Number: US-TEVA-2021-US-1969183

PATIENT
  Age: 50 Year
  Sex: Female

DRUGS (1)
  1. WARFARIN [Suspect]
     Active Substance: WARFARIN
     Indication: Atrial fibrillation
     Route: 065

REACTIONS (5)
  - Haematoma [Recovering/Resolving]
  - Compartment syndrome [Recovering/Resolving]
  - Muscle necrosis [Recovering/Resolving]
  - Nervous system disorder [Recovering/Resolving]
  - Complex regional pain syndrome [Recovering/Resolving]
